FAERS Safety Report 6198330-9 (Version None)
Quarter: 2009Q2

REPORT INFORMATION
  Report Type: 
  Country: None (occurrence: None)
  Receive Date: 20090521
  Receipt Date: 20090508
  Transmission Date: 20091009
  Serious: Yes (Other)
  Sender: FDA-Public Use
  Company Number: FR-ROCHE-632459

PATIENT
  Age: 51 Year
  Sex: Male

DRUGS (3)
  1. PEG-INTERFERON ALFA 2A (RO 25-8310) [Suspect]
     Dosage: UG: MICRO GRAM.
     Route: 065
  2. AZATHIOPRINE [Concomitant]
  3. STEROID NOS [Concomitant]

REACTIONS (2)
  - ANAEMIA [None]
  - HAEMOLYTIC URAEMIC SYNDROME [None]
